FAERS Safety Report 12214155 (Version 1)
Quarter: 2016Q1

REPORT INFORMATION
  Report Type: Spontaneous
  Country: GB (occurrence: GB)
  Receive Date: 20160328
  Receipt Date: 20160328
  Transmission Date: 20160526
  Serious: Yes (Hospitalization, Other)
  Sender: FDA-Public Use
  Company Number: GB-TEVA-645894ACC

PATIENT
  Age: 84 Year
  Sex: Female
  Weight: 66 kg

DRUGS (7)
  1. AMIODARONE [Suspect]
     Active Substance: AMIODARONE
     Indication: ATRIAL FIBRILLATION
     Dosage: 200 MG/KG DAILY;
     Route: 048
     Dates: end: 20160309
  2. DOXAZOSIN [Concomitant]
     Active Substance: DOXAZOSIN\DOXAZOSIN MESYLATE
  3. LANSOPRAZOLE. [Concomitant]
     Active Substance: LANSOPRAZOLE
  4. PERINDOPRIL [Concomitant]
     Active Substance: PERINDOPRIL
  5. FUROSEMIDE SODIUM [Concomitant]
     Active Substance: FUROSEMIDE SODIUM
  6. GTN [Concomitant]
     Active Substance: NITROGLYCERIN
  7. WARFARIN [Concomitant]
     Active Substance: WARFARIN

REACTIONS (2)
  - Hepatic necrosis [Not Recovered/Not Resolved]
  - Liver function test abnormal [Unknown]
